FAERS Safety Report 8873077 (Version 1)
Quarter: 2012Q4

REPORT INFORMATION
  Report Type: 
  Country: CA (occurrence: CA)
  Receive Date: 20121029
  Receipt Date: 20121029
  Transmission Date: 20130627
  Serious: Yes (Other)
  Sender: FDA-Public Use
  Company Number: CHPA2012CA022237

PATIENT
  Age: 56 Year
  Sex: Female

DRUGS (1)
  1. BUCKLEY^S UNKNOWN [Suspect]
     Indication: SINUS CONGESTION
     Dosage: 1 tsp as needed
     Route: 048

REACTIONS (4)
  - Fibromyalgia [Not Recovered/Not Resolved]
  - Lower respiratory tract infection [Not Recovered/Not Resolved]
  - Malaise [Not Recovered/Not Resolved]
  - Off label use [Unknown]
